FAERS Safety Report 9002130 (Version 1)
Quarter: 2013Q1

REPORT INFORMATION
  Report Type: Spontaneous
  Country: US (occurrence: None)
  Receive Date: 20130103
  Receipt Date: 20130103
  Transmission Date: 20140127
  Serious: Yes (Other)
  Sender: FDA-Public Use
  Company Number: None

PATIENT
  Age: 6 Year
  Sex: Female
  Weight: 21.77 kg

DRUGS (2)
  1. MONTELUKAST SODIUM [Suspect]
     Dosage: 5MG DAILY ORAL
     Route: 048
     Dates: start: 20120604, end: 20120612
  2. MONTELUKAST SODIUM [Suspect]
     Dosage: 5MG DAILY ORAL
     Route: 048
     Dates: start: 20120604, end: 20120612

REACTIONS (1)
  - Migraine [None]
